FAERS Safety Report 13873021 (Version 3)
Quarter: 2017Q3

REPORT INFORMATION
  Report Type: Spontaneous
  Country: NL (occurrence: NL)
  Receive Date: 20170816
  Receipt Date: 20170825
  Transmission Date: 20171127
  Serious: Yes (Death, Other)
  Sender: FDA-Public Use
  Company Number: NL-009507513-1708NLD005576

PATIENT
  Age: 28 Year
  Sex: Female
  Weight: 75 kg

DRUGS (1)
  1. MARVELON [Suspect]
     Active Substance: DESOGESTREL\ETHINYL ESTRADIOL
     Indication: CONTRACEPTION
     Dosage: 1 TABLET, CYCLICAL
     Route: 048

REACTIONS (3)
  - Dyspnoea [Unknown]
  - Pulmonary embolism [Fatal]
  - Muscle spasms [Unknown]

NARRATIVE: CASE EVENT DATE: 200008
